FAERS Safety Report 9633011 (Version 2)
Quarter: 2013Q4

REPORT INFORMATION
  Report Type: Report from Study
  Country: PH (occurrence: PH)
  Receive Date: 20131018
  Receipt Date: 20131018
  Transmission Date: 20140711
  Serious: Yes (Death, Other)
  Sender: FDA-Public Use
  Company Number: PH-BAXTER-2013BAX038686

PATIENT
  Age: 57 Year
  Sex: Female

DRUGS (2)
  1. DIANEAL PD2 WITH 1.5% DEXTROSE [Suspect]
     Indication: PERITONEAL DIALYSIS
     Route: 033
     Dates: start: 20130522, end: 20131008
  2. DIANEAL PD2 WITH 1.5% DEXTROSE [Suspect]
     Indication: RENAL FAILURE CHRONIC

REACTIONS (3)
  - Cardiac arrest [Fatal]
  - Peritonitis [Unknown]
  - Postoperative wound infection [Unknown]
